FAERS Safety Report 16893695 (Version 3)
Quarter: 2021Q1

REPORT INFORMATION
  Report Type: Spontaneous
  Country: US (occurrence: US)
  Receive Date: 20191008
  Receipt Date: 20210202
  Transmission Date: 20210419
  Serious: Yes (Other)
  Sender: FDA-Public Use
  Company Number: US-PFIZER INC-2019138405

PATIENT
  Age: 79 Year
  Sex: Female
  Weight: 63.96 kg

DRUGS (4)
  1. LYRICA [Suspect]
     Active Substance: PREGABALIN
     Indication: MENTAL DISORDER
  2. ZOLOFT [Concomitant]
     Active Substance: SERTRALINE HYDROCHLORIDE
     Indication: DEPRESSION
     Dosage: 200 MG, 1X/DAY, (100MG TABLET?2 TABLETS BY MOUTH IN THE MORNING)
     Route: 048
  3. LYRICA [Suspect]
     Active Substance: PREGABALIN
     Indication: DEPRESSION
     Dosage: 50 MG, 2X/DAY (TAKE 1 CAPSULE 2 TIMES DAILY, MORNING AND EVENING)
     Route: 048
  4. WELLBUTRIN [Concomitant]
     Active Substance: BUPROPION HYDROCHLORIDE
     Indication: DEPRESSION
     Dosage: 300 MG, 1X/DAY IN THE MORNING

REACTIONS (5)
  - Wrist fracture [Unknown]
  - Off label use [Unknown]
  - Speech disorder [Unknown]
  - Fall [Recovered/Resolved with Sequelae]
  - Drug dependence [Unknown]

NARRATIVE: CASE EVENT DATE: 20190920
